FAERS Safety Report 4284903-7 (Version None)
Quarter: 2004Q1

REPORT INFORMATION
  Report Type: 
  Country: None (occurrence: None)
  Receive Date: 20040203
  Receipt Date: 20040203
  Transmission Date: 20041129
  Serious: Yes (Hospitalization)
  Sender: FDA-Public Use
  Company Number: None

PATIENT
  Age: 83 Year
  Weight: 53 kg

DRUGS (5)
  1. AMIODARONE HCL [Suspect]
     Indication: ARRHYTHMIA
     Dosage: 200MG DAILY ORAL
     Route: 048
     Dates: start: 20030801, end: 20031130
  2. ZESTRIL [Concomitant]
  3. DIGOXIN [Concomitant]
  4. COUMADIN [Concomitant]
  5. NORVASC [Concomitant]

REACTIONS (4)
  - BLOOD PRESSURE INCREASED [None]
  - CHEST DISCOMFORT [None]
  - MUSCLE TIGHTNESS [None]
  - PNEUMONITIS [None]
